FAERS Safety Report 4338644-8 (Version None)
Quarter: 2004Q2

REPORT INFORMATION
  Report Type: 
  Country: None (occurrence: None)
  Receive Date: 20040414
  Receipt Date: 20040324
  Transmission Date: 20050107
  Serious: Yes (Hospitalization, Other)
  Sender: FDA-Public Use
  Company Number: PHBS2004JP04062

PATIENT
  Age: 58 Year
  Sex: Male

DRUGS (1)
  1. TEGRETOL [Suspect]
     Route: 048

REACTIONS (7)
  - DEEP VEIN THROMBOSIS [None]
  - GENERALISED ERYTHEMA [None]
  - HEPATIC FUNCTION ABNORMAL [None]
  - HYPERSENSITIVITY [None]
  - LYMPHOCYTE MORPHOLOGY ABNORMAL [None]
  - OSTEITIS DEFORMANS [None]
  - PYREXIA [None]
